FAERS Safety Report 5774604-8 (Version None)
Quarter: 2008Q2

REPORT INFORMATION
  Report Type: 
  Country: None (occurrence: None)
  Receive Date: 20080612
  Receipt Date: 20080610
  Transmission Date: 20081010
  Serious: Yes (Other)
  Sender: FDA-Public Use
  Company Number: 2008SP009300

PATIENT
  Age: 47 Year
  Sex: Female

DRUGS (7)
  1. PEG-INTRON [Suspect]
     Indication: HEPATITIS C
     Dosage: 150 MCG; SC
     Route: 058
     Dates: start: 20080509, end: 20080512
  2. RIBAVIRIN [Suspect]
     Indication: HEPATITIS C
     Dosage: PO
     Route: 048
     Dates: start: 20080509, end: 20080512
  3. SEROQUEL [Concomitant]
  4. TRILEPTAL [Concomitant]
  5. COGENTIN [Concomitant]
  6. LAMICTAL [Concomitant]
  7. VICODIN [Concomitant]

REACTIONS (18)
  - ANOREXIA [None]
  - ANXIETY [None]
  - ASTHENIA [None]
  - CONDITION AGGRAVATED [None]
  - CRYING [None]
  - DEHYDRATION [None]
  - DEPRESSION [None]
  - DIARRHOEA [None]
  - DRY MOUTH [None]
  - DYSGEUSIA [None]
  - ERYTHEMA [None]
  - INJECTION SITE ERYTHEMA [None]
  - INJECTION SITE PAIN [None]
  - RESTLESSNESS [None]
  - SKIN WARM [None]
  - SUICIDAL IDEATION [None]
  - SUICIDE ATTEMPT [None]
  - VOMITING [None]
